FAERS Safety Report 4312232-1 (Version None)
Quarter: 2004Q1

REPORT INFORMATION
  Report Type: 
  Country: None (occurrence: None)
  Receive Date: 20040303
  Receipt Date: 20040220
  Transmission Date: 20041129
  Serious: Yes (Other)
  Sender: FDA-Public Use
  Company Number: HQWYE227920FEB04

PATIENT
  Sex: Female

DRUGS (1)
  1. PREMARIN [Suspect]
     Indication: OESTROGEN REPLACEMENT THERAPY
     Dosage: 0.62 MG, ORAL
     Route: 048

REACTIONS (3)
  - CARDIAC DISORDER [None]
  - CATHETERISATION CARDIAC [None]
  - CHEST PAIN [None]
